FAERS Safety Report 7055442-5 (Version None)
Quarter: 2010Q4

REPORT INFORMATION
  Report Type: 
  Country: None (occurrence: None)
  Receive Date: 20101021
  Receipt Date: 20101013
  Transmission Date: 20110411
  Serious: Yes (Hospitalization)
  Sender: FDA-Public Use
  Company Number: US-TYCO HEALTHCARE/MALLINCKRODT-T201002131

PATIENT
  Age: 34 Year
  Sex: Male

DRUGS (1)
  1. METHADONE HYDROCHLORIDE [Suspect]
     Dosage: 10 10 MG TABLETS
     Route: 013

REACTIONS (4)
  - INCORRECT ROUTE OF DRUG ADMINISTRATION [None]
  - INTENTIONAL DRUG MISUSE [None]
  - PERIPHERAL ISCHAEMIA [None]
  - RHABDOMYOLYSIS [None]
